FAERS Safety Report 10557509 (Version 4)
Quarter: 2015Q2

REPORT INFORMATION
  Report Type: Report from Study
  Country: US (occurrence: US)
  Receive Date: 20141031
  Receipt Date: 20150626
  Transmission Date: 20150821
  Serious: Yes (Hospitalization)
  Sender: FDA-Public Use
  Company Number: US-ACTELION-A-US2014-107547

PATIENT
  Age: 69 Year
  Sex: Female

DRUGS (18)
  1. LEVOTHYROXINE [Concomitant]
     Active Substance: LEVOTHYROXINE
     Dosage: 100 MCG, QD
  2. FUROSEMIDE. [Concomitant]
     Active Substance: FUROSEMIDE
     Dosage: 80 MG, 3 TIMES A WEEK
  3. CENTRUM SILVER [Concomitant]
     Active Substance: VITAMINS
     Dosage: 1 TABLET QD
     Dates: start: 201104
  4. VENTAVIS [Suspect]
     Active Substance: ILOPROST
     Indication: PULMONARY ARTERIAL HYPERTENSION
     Dosage: 6 X DAILY
     Route: 055
     Dates: start: 2007
  5. MINOCYCLINE [Concomitant]
     Active Substance: MINOCYCLINE\MINOCYCLINE HYDROCHLORIDE
     Dosage: 100 MG, QD
     Dates: start: 2012
  6. PRAZOSIN [Concomitant]
     Active Substance: PRAZOSIN
     Dosage: 1 MG, QD
     Dates: start: 2012
  7. FLUTICASONE PROPIONATE. [Concomitant]
     Active Substance: FLUTICASONE PROPIONATE
     Dosage: 2 SPRAYS IN EACH NARES, QD
     Route: 045
     Dates: start: 2013
  8. CALTRATE WITH VITAMIN D [Concomitant]
     Active Substance: CALCIUM CARBONATE\VITAMIN D
     Dosage: 2 TABLETS, QD
     Dates: start: 201104
  9. TYVASO [Suspect]
     Active Substance: TREPROSTINIL
     Indication: PRODUCT USED FOR UNKNOWN INDICATION
     Route: 065
  10. OXYGEN. [Concomitant]
     Active Substance: OXYGEN
  11. TRAMADOL [Concomitant]
     Active Substance: TRAMADOL
     Dosage: 37.5 MG, PRN
  12. TRACLEER [Suspect]
     Active Substance: BOSENTAN\BOSENTAN MONOHYDRATE
     Indication: PULMONARY ARTERIAL HYPERTENSION
     Dosage: 125 MG, BID
     Route: 048
     Dates: start: 200602
  13. METOPROLOL [Concomitant]
     Active Substance: METOPROLOL
     Dosage: 50 MG, QD
  14. POTASSIUM CITRATE. [Concomitant]
     Active Substance: POTASSIUM CITRATE
     Dosage: 10 MEQ, BID
  15. FUROSEMIDE. [Concomitant]
     Active Substance: FUROSEMIDE
     Dosage: 40 MG, 4 TIMES A WEEK
  16. LIDODERM [Concomitant]
     Active Substance: LIDOCAINE
     Dosage: 1 PATCH, AS NEEDED
     Route: 062
     Dates: start: 2011
  17. NITROGLYCERINE [Concomitant]
     Active Substance: NITROGLYCERIN
     Dosage: UNK, PRN
     Dates: start: 2006
  18. NEXIUM [Concomitant]
     Active Substance: ESOMEPRAZOLE MAGNESIUM
     Dosage: 40 MG, BID

REACTIONS (22)
  - Dizziness [Unknown]
  - Vision blurred [Unknown]
  - Epistaxis [Unknown]
  - Musculoskeletal pain [Unknown]
  - Nasopharyngitis [Unknown]
  - Arthralgia [Unknown]
  - Balance disorder [Unknown]
  - Diarrhoea [Recovered/Resolved]
  - Drug dose omission [Unknown]
  - Syncope [Unknown]
  - Headache [Unknown]
  - Head injury [Unknown]
  - Arthritis [Unknown]
  - Hypoaesthesia [Unknown]
  - Joint injury [Unknown]
  - Concussion [Unknown]
  - Anaemia [Unknown]
  - Feeling abnormal [Unknown]
  - Road traffic accident [Recovered/Resolved]
  - Fall [Unknown]
  - Post-traumatic neck syndrome [Unknown]
  - Neck pain [Unknown]

NARRATIVE: CASE EVENT DATE: 2011
